FAERS Safety Report 16412555 (Version 1)
Quarter: 2019Q2

REPORT INFORMATION
  Report Type: Spontaneous
  Country: US (occurrence: US)
  Receive Date: 20190610
  Receipt Date: 20190610
  Transmission Date: 20190711
  Serious: No
  Sender: FDA-Public Use
  Company Number: US-GLAXOSMITHKLINE-US2019103084

PATIENT
  Sex: Female

DRUGS (2)
  1. BENADRYL CREAM [Suspect]
     Active Substance: DIPHENHYDRAMINE\ZINC ACETATE
     Indication: ERYTHEMA
     Dosage: UNK
  2. NICODERM CQ [Suspect]
     Active Substance: NICOTINE
     Indication: SMOKING CESSATION THERAPY
     Dosage: UNK
     Dates: start: 20190604

REACTIONS (6)
  - Application site pruritus [Unknown]
  - Application site irritation [Unknown]
  - Adverse drug reaction [Unknown]
  - Application site burn [Unknown]
  - Application site erythema [Unknown]
  - Burning sensation [Unknown]
